FAERS Safety Report 23514894 (Version 1)
Quarter: 2024Q1

REPORT INFORMATION
  Report Type: Spontaneous
  Country: GB (occurrence: GB)
  Receive Date: 20240212
  Receipt Date: 20240212
  Transmission Date: 20240410
  Serious: Yes (Other)
  Sender: FDA-Public Use
  Company Number: None

PATIENT
  Age: 57 Year
  Sex: Female
  Weight: 60 kg

DRUGS (3)
  1. ESCITALOPRAM [Suspect]
     Active Substance: ESCITALOPRAM OXALATE
     Indication: Anxiety
     Dosage: IN THE MORNING ; TEVA UK
     Route: 065
     Dates: start: 20231201
  2. ESTRADIOL [Concomitant]
     Active Substance: ESTRADIOL
     Indication: Hormone replacement therapy
     Dates: start: 20230901
  3. UTROGESTAN [Concomitant]
     Active Substance: PROGESTERONE
     Indication: Hormone replacement therapy
     Dates: start: 20230901

REACTIONS (1)
  - Rash erythematous [Not Recovered/Not Resolved]

NARRATIVE: CASE EVENT DATE: 20240128
